FAERS Safety Report 5668154-7 (Version None)
Quarter: 2008Q1

REPORT INFORMATION
  Report Type: 
  Country: None (occurrence: None)
  Receive Date: 20080315
  Receipt Date: 20080214
  Transmission Date: 20080703
  Serious: No
  Sender: FDA-Public Use
  Company Number: US-ABBOTT-08P-163-0438582-00

PATIENT
  Sex: Female
  Weight: 62.198 kg

DRUGS (6)
  1. HUMIRA [Suspect]
     Indication: RHEUMATOID ARTHRITIS
     Route: 058
     Dates: start: 20080211
  2. GLIPIZIDE [Concomitant]
     Indication: DIABETES MELLITUS
     Route: 048
  3. METFORMIN [Concomitant]
     Indication: DIABETES MELLITUS
     Route: 048
  4. ATENOLOL [Concomitant]
     Indication: PALPITATIONS
     Dosage: 1/2 TAB
     Route: 048
  5. PREDNISONE [Concomitant]
     Indication: RHEUMATOID ARTHRITIS
     Route: 048
  6. GABAPENTIN [Concomitant]
     Indication: DIABETIC NEUROPATHY
     Route: 048

REACTIONS (9)
  - ABDOMINAL PAIN UPPER [None]
  - ABNORMAL FAECES [None]
  - ANORECTAL DISCOMFORT [None]
  - GLOSSODYNIA [None]
  - HEADACHE [None]
  - MOUTH INJURY [None]
  - MUSCLE SPASMS [None]
  - RASH [None]
  - STOMATITIS [None]
